FAERS Safety Report 11971575 (Version 3)
Quarter: 2016Q1

REPORT INFORMATION
  Report Type: Spontaneous
  Country: ES (occurrence: ES)
  Receive Date: 20160128
  Receipt Date: 20160209
  Transmission Date: 20160526
  Serious: Yes (Hospitalization)
  Sender: FDA-Public Use
  Company Number: ES-PFIZER INC-2016041141

PATIENT
  Age: 5 Year
  Sex: Male

DRUGS (1)
  1. GENOTONORM MINIQUICK [Suspect]
     Active Substance: SOMATROPIN
     Indication: PRADER-WILLI SYNDROME
     Dosage: 0.6 MG, DAILY
     Route: 058
     Dates: start: 20120201

REACTIONS (2)
  - Gastric dilatation [Recovered/Resolved]
  - Impaired gastric emptying [Recovered/Resolved]

NARRATIVE: CASE EVENT DATE: 20160124
